FAERS Safety Report 6032593-5 (Version None)
Quarter: 2009Q1

REPORT INFORMATION
  Report Type: 
  Country: None (occurrence: None)
  Receive Date: 20090109
  Receipt Date: 20090106
  Transmission Date: 20090719
  Serious: Yes (Other)
  Sender: FDA-Public Use
  Company Number: US-ALLERGAN-0811561US

PATIENT
  Sex: Female
  Weight: 50.34 kg

DRUGS (7)
  1. COMBIGAN [Suspect]
     Indication: INTRAOCULAR PRESSURE INCREASED
     Dosage: 1 GTT, BID
     Route: 047
     Dates: start: 20080626, end: 20080801
  2. COMBIGAN [Suspect]
     Dosage: 1 GTT, BID
     Route: 047
     Dates: start: 20080901, end: 20080929
  3. COMBIGAN [Suspect]
  4. TAMOXIFEN CITRATE [Concomitant]
     Indication: BREAST CANCER
     Dosage: 20 MG, QD
     Route: 048
     Dates: start: 20080401
  5. OXYCONTIN XL [Concomitant]
     Indication: PAIN
     Dosage: 20 MG, QD
     Route: 048
     Dates: start: 20070101
  6. OXYCODONE [Concomitant]
     Indication: PAIN
     Dosage: 5 MG, UNK
     Route: 048
  7. ZOMETA [Concomitant]
     Indication: BREAST CANCER
     Dosage: 4 MG, QMONTH
     Dates: start: 20070501

REACTIONS (3)
  - HEART RATE IRREGULAR [None]
  - INAPPROPRIATE SCHEDULE OF DRUG ADMINISTRATION [None]
  - PALPITATIONS [None]
